FAERS Safety Report 12721053 (Version 1)
Quarter: 2016Q3

REPORT INFORMATION
  Report Type: Spontaneous
  Country: FR (occurrence: FR)
  Receive Date: 20160907
  Receipt Date: 20160907
  Transmission Date: 20161109
  Serious: Yes (Death, Hospitalization)
  Sender: FDA-Public Use
  Company Number: FR-ROCHE-1824292

PATIENT
  Age: 29 Year
  Sex: Male

DRUGS (15)
  1. COTELLIC [Suspect]
     Active Substance: COBIMETINIB
     Indication: HISTIOCYTOSIS
     Dosage: PRESCRIBED
     Route: 048
     Dates: start: 20160726
  2. AERIUS [Concomitant]
     Active Substance: DESLORATADINE
     Route: 065
  3. VITAMIN K1 [Concomitant]
     Active Substance: PHYTONADIONE
     Dosage: 1 AMPOULE?AT 01:25PM
     Route: 065
     Dates: start: 20160728
  4. COTELLIC [Suspect]
     Active Substance: COBIMETINIB
     Dosage: ADMINISTERED
     Route: 048
     Dates: start: 20160729
  5. COTELLIC [Suspect]
     Active Substance: COBIMETINIB
     Route: 065
     Dates: start: 20160730
  6. PREVISCAN (FRANCE) [Suspect]
     Active Substance: FLUINDIONE
     Indication: DEEP VEIN THROMBOSIS
     Dosage: ALTERNATING 3/4/DAY  3/4/DAY  1/2/DAY
     Route: 048
     Dates: start: 2011
  7. PREVISCAN (FRANCE) [Suspect]
     Active Substance: FLUINDIONE
     Dosage: (1/2) AT 6:00 PM
     Route: 048
     Dates: start: 20160729
  8. PREVISCAN (FRANCE) [Suspect]
     Active Substance: FLUINDIONE
     Dosage: (3/4)
     Route: 048
     Dates: start: 20160725
  9. COTELLIC [Suspect]
     Active Substance: COBIMETINIB
     Dosage: A DAY FOR 21 DAYS/48
     Route: 065
  10. PEGASYS [Concomitant]
     Active Substance: PEGINTERFERON ALFA-2A
     Dosage: 180 MCG/WEEK
     Route: 065
  11. LOVENOX [Suspect]
     Active Substance: ENOXAPARIN SODIUM
     Indication: PRODUCT USED FOR UNKNOWN INDICATION
     Dosage: AT 6:00PM
     Route: 058
     Dates: start: 20160729
  12. LOVENOX [Suspect]
     Active Substance: ENOXAPARIN SODIUM
     Dosage: AT 6:00 AM
     Route: 058
     Dates: start: 20160730
  13. PREVISCAN (FRANCE) [Suspect]
     Active Substance: FLUINDIONE
     Dosage: (3/4)
     Route: 048
     Dates: start: 20160726
  14. PREVISCAN (FRANCE) [Suspect]
     Active Substance: FLUINDIONE
     Dosage: (1/2)
     Route: 048
     Dates: start: 20160727, end: 20160728
  15. PARACETAMOL [Concomitant]
     Active Substance: ACETAMINOPHEN
     Dosage: BETWEEN 1 G AND 3 G/DAY
     Route: 065

REACTIONS (3)
  - Off label use [Fatal]
  - Pulmonary alveolar haemorrhage [Fatal]
  - Product use issue [Fatal]

NARRATIVE: CASE EVENT DATE: 20160729
